FAERS Safety Report 15150249 (Version 1)
Quarter: 2018Q3

REPORT INFORMATION
  Report Type: Spontaneous
  Country: GB (occurrence: GB)
  Receive Date: 20180716
  Receipt Date: 20180716
  Transmission Date: 20181010
  Serious: Yes (Other)
  Sender: FDA-Public Use
  Company Number: GB-US WORLDMEDS, LLC-STA_00016456

PATIENT
  Sex: Male

DRUGS (1)
  1. APOMORPHINE HYDROCHLORIDE [Suspect]
     Active Substance: APOMORPHINE HYDROCHLORIDE
     Dosage: PUMP I

REACTIONS (3)
  - Ataxia [Recovered/Resolved]
  - Somnolence [Recovered/Resolved]
  - Incorrect dose administered by device [Recovered/Resolved]

NARRATIVE: CASE EVENT DATE: 20141028
